FAERS Safety Report 9785748 (Version 1)
Quarter: 2013Q4

REPORT INFORMATION
  Report Type: Spontaneous
  Country: FR (occurrence: FR)
  Receive Date: 20131227
  Receipt Date: 20131227
  Transmission Date: 20140711
  Serious: Yes (Other)
  Sender: FDA-Public Use
  Company Number: FR-MERCK-1312FRA007667

PATIENT
  Sex: Male

DRUGS (4)
  1. EZETROL [Suspect]
     Dosage: 10 MG, QD
     Route: 048
     Dates: start: 200801
  2. NEBIVOLOL [Suspect]
     Dosage: 5 MG, QD
     Dates: start: 200801
  3. IRBESARTAN [Suspect]
     Dosage: 150 MG, QD
     Dates: start: 200801
  4. CLOPIDOGREL [Suspect]
     Dosage: 75 MG, QD
     Route: 048
     Dates: start: 200803

REACTIONS (2)
  - Pain [Not Recovered/Not Resolved]
  - Muscular weakness [Not Recovered/Not Resolved]
